FAERS Safety Report 7691615-6 (Version None)
Quarter: 2011Q3

REPORT INFORMATION
  Report Type: 
  Country: None (occurrence: None)
  Receive Date: 20110818
  Receipt Date: 20110811
  Transmission Date: 20111222
  Serious: Yes (Other)
  Sender: FDA-Public Use
  Company Number: CHPA2011GB10733

PATIENT
  Age: 39 Year
  Sex: Male
  Weight: 80 kg

DRUGS (6)
  1. NICOTINE [Suspect]
     Dosage: 10 MG, UNK
     Dates: start: 20110601, end: 20110601
  2. CARBAMAZEPINE [Concomitant]
     Indication: MOOD SWINGS
     Dosage: 200 MG, QID
     Route: 048
  3. PROCYCLIDINE HYDROCHLORIDE 2MG TAB [Concomitant]
     Dosage: 10 MG, QD
     Route: 048
  4. NICOTINE [Suspect]
     Indication: NICOTINE DEPENDENCE
     Dosage: 21 MG, UNK
     Route: 062
     Dates: start: 20110601, end: 20110601
  5. LANSOPRAZOLE [Concomitant]
     Indication: DYSPEPSIA
     Dosage: 15 MG, QD
     Route: 048
  6. SULPIRIDE [Concomitant]
     Indication: SCHIZOPHRENIA
     Dosage: 200 MG X 8, QD
     Route: 048

REACTIONS (6)
  - DISEASE RECURRENCE [None]
  - PSYCHOTIC DISORDER [None]
  - TREATMENT NONCOMPLIANCE [None]
  - ANXIETY [None]
  - OVERDOSE [None]
  - STRESS [None]
